FAERS Safety Report 6191586-8 (Version None)
Quarter: 2009Q2

REPORT INFORMATION
  Report Type: 
  Country: None (occurrence: None)
  Receive Date: 20090515
  Receipt Date: 20090506
  Transmission Date: 20091009
  Serious: Yes (Other)
  Sender: FDA-Public Use
  Company Number: PHHY2009CA17710

PATIENT
  Sex: Female

DRUGS (1)
  1. ACLASTA [Suspect]
     Indication: OSTEOPOROSIS
     Dosage: UNK
     Dates: start: 20080327

REACTIONS (5)
  - BURNING SENSATION [None]
  - HEARING IMPAIRED [None]
  - PAIN IN JAW [None]
  - THYROIDECTOMY [None]
  - TINNITUS [None]
